FAERS Safety Report 19579608 (Version 2)
Quarter: 2021Q4

REPORT INFORMATION
  Report Type: Report from Study
  Country: US (occurrence: US)
  Receive Date: 20210720
  Receipt Date: 20211015
  Transmission Date: 20220303
  Serious: Yes (Hospitalization)
  Sender: FDA-Public Use
  Company Number: US-BOEHRINGERINGELHEIM-2020-BI-065128

PATIENT
  Age: 59 Year
  Sex: Female

DRUGS (2)
  1. OFEV [Suspect]
     Active Substance: NINTEDANIB
     Indication: Idiopathic pulmonary fibrosis
     Dosage: OFEV DOSE 300MG DAILY
     Route: 048
     Dates: start: 20201111
  2. OFEV [Suspect]
     Active Substance: NINTEDANIB
     Route: 048
     Dates: start: 20210330

REACTIONS (12)
  - Food poisoning [Unknown]
  - Nausea [Unknown]
  - Dyspepsia [Unknown]
  - Haematemesis [Unknown]
  - Feeding disorder [Unknown]
  - Diarrhoea [Unknown]
  - Haematochezia [Unknown]
  - Muscle spasms [Recovered/Resolved]
  - Constipation [Unknown]
  - Diarrhoea haemorrhagic [Recovered/Resolved]
  - Insomnia [Unknown]
  - Abdominal pain upper [Unknown]

NARRATIVE: CASE EVENT DATE: 20210401
